FAERS Safety Report 6576651-5 (Version None)
Quarter: 2010Q1

REPORT INFORMATION
  Report Type: 
  Country: None (occurrence: None)
  Receive Date: 20100210
  Receipt Date: 20100129
  Transmission Date: 20100710
  Serious: Yes (Other)
  Sender: FDA-Public Use
  Company Number: DE-WATSON-2010-01284

PATIENT

DRUGS (1)
  1. SIMVASTATIN [Suspect]
     Indication: DRUG USE FOR UNKNOWN INDICATION
     Dosage: ^40^ UNK, DAILY
     Route: 048
     Dates: start: 20091017

REACTIONS (2)
  - BLOOD CREATININE INCREASED [None]
  - VASCULITIS [None]
